FAERS Safety Report 22347924 (Version 2)
Quarter: 2023Q2

REPORT INFORMATION
  Report Type: Report from Study
  Country: US (occurrence: US)
  Receive Date: 20230522
  Receipt Date: 20230530
  Transmission Date: 20230721
  Serious: Yes (Hospitalization)
  Sender: FDA-Public Use
  Company Number: US-002147023-NVSC2023US110221

PATIENT
  Age: 49 Year
  Sex: Male
  Weight: 99.4 kg

DRUGS (11)
  1. LEQVIO [Suspect]
     Active Substance: INCLISIRAN SODIUM
     Indication: Cardiovascular event prophylaxis
     Dosage: UNK
     Route: 058
     Dates: start: 20220809, end: 20221109
  2. XANAX [Concomitant]
     Active Substance: ALPRAZOLAM
     Indication: Post-traumatic stress disorder
     Dosage: UNK
     Route: 065
     Dates: start: 20220615
  3. XANAX [Concomitant]
     Active Substance: ALPRAZOLAM
     Indication: Stress
  4. ASPIRIN [Concomitant]
     Active Substance: ASPIRIN
     Indication: Cardiovascular event prophylaxis
     Dosage: UNK
     Route: 065
     Dates: start: 20220621
  5. ATORVASTATIN [Concomitant]
     Active Substance: ATORVASTATIN
     Indication: Dyslipidaemia
     Dosage: UNK
     Route: 065
     Dates: start: 20220621
  6. ATORVASTATIN [Concomitant]
     Active Substance: ATORVASTATIN
     Indication: Hyperlipidaemia
  7. BRILINTA [Concomitant]
     Active Substance: TICAGRELOR
     Indication: Myocardial infarction
     Dosage: UNK
     Route: 065
     Dates: start: 20220621
  8. LISINOPRIL [Concomitant]
     Active Substance: LISINOPRIL
     Indication: Hypertension
     Dosage: UNK
     Route: 065
     Dates: start: 20220621
  9. METOPROLOL SUCCINATE [Concomitant]
     Active Substance: METOPROLOL SUCCINATE
     Indication: Hypertension
     Dosage: UNK
     Route: 065
     Dates: start: 20220621
  10. ADVIL [Concomitant]
     Active Substance: IBUPROFEN
     Indication: Arthritis
     Dosage: UNK
     Route: 065
     Dates: start: 20220705
  11. COENZYME Q10 [Concomitant]
     Active Substance: DIETARY SUPPLEMENT\UBIDECARENONE
     Indication: Cardiovascular event prophylaxis
     Dosage: UNK
     Route: 065
     Dates: start: 20220705

REACTIONS (1)
  - Syncope [Recovered/Resolved]

NARRATIVE: CASE EVENT DATE: 20230509
